FAERS Safety Report 6841745-3 (Version None)
Quarter: 2010Q3

REPORT INFORMATION
  Report Type: 
  Country: None (occurrence: None)
  Receive Date: 20100714
  Receipt Date: 20070613
  Transmission Date: 20110219
  Serious: No
  Sender: FDA-Public Use
  Company Number: US-PFIZER INC-2007059293

PATIENT
  Sex: Female
  Weight: 48.5 kg

DRUGS (4)
  1. CHANTIX [Suspect]
     Indication: SMOKING CESSATION THERAPY
     Route: 048
     Dates: start: 20070301
  2. CLONIDINE [Concomitant]
  3. VALSARTAN [Concomitant]
  4. LISINOPRIL [Concomitant]

REACTIONS (3)
  - ABDOMINAL PAIN UPPER [None]
  - ANXIETY [None]
  - NAUSEA [None]
